FAERS Safety Report 23761506 (Version 1)
Quarter: 2024Q2

REPORT INFORMATION
  Report Type: Spontaneous
  Country: FR (occurrence: FR)
  Receive Date: 20240419
  Receipt Date: 20240419
  Transmission Date: 20240716
  Serious: Yes (Hospitalization, Other)
  Sender: FDA-Public Use
  Company Number: FR-MET-002323

PATIENT
  Age: 54 Year
  Sex: Male

DRUGS (1)
  1. STENDRA [Suspect]
     Active Substance: AVANAFIL
     Indication: Erectile dysfunction
     Route: 048
     Dates: start: 20231229, end: 20231229

REACTIONS (1)
  - Carotid artery dissection [Recovering/Resolving]

NARRATIVE: CASE EVENT DATE: 20231229
